FAERS Safety Report 12959042 (Version 2)
Quarter: 2017Q4

REPORT INFORMATION
  Report Type: Spontaneous
  Country: FR (occurrence: FR)
  Receive Date: 20161121
  Receipt Date: 20171104
  Transmission Date: 20180320
  Serious: Yes (Other)
  Sender: FDA-Public Use
  Company Number: FR-AUROBINDO-AUR-APL-2016-13361

PATIENT
  Age: 82 Year
  Sex: Female

DRUGS (15)
  1. GENTAMICINE PANPHARMA [Suspect]
     Active Substance: GENTAMICIN
     Indication: HYPERTHERMIA
     Dosage: 240 MG, DAILY
     Route: 042
     Dates: start: 20160928, end: 20160928
  2. ZYLORIC [Suspect]
     Active Substance: ALLOPURINOL
     Indication: PRODUCT USED FOR UNKNOWN INDICATION
     Dosage: 300 MG, ONCE A DAY
     Route: 048
     Dates: end: 20160927
  3. SERTRALINE ARROW [Concomitant]
     Active Substance: SERTRALINE HYDROCHLORIDE
     Indication: PRODUCT USED FOR UNKNOWN INDICATION
     Dosage: 50 MG, ONCE A DAY
     Route: 048
  4. CEFTRIAXONE PANPHARMA [Suspect]
     Active Substance: CEFTRIAXONE
     Indication: HYPERTHERMIA
     Dosage: 1 DF, ONCE A DAY
     Route: 042
     Dates: start: 20160927, end: 20161001
  5. SALBUTAMOL [Suspect]
     Active Substance: ALBUTEROL
     Indication: PRODUCT USED FOR UNKNOWN INDICATION
     Dosage: 1 DF, 3 TIMES A DAY
     Route: 055
     Dates: start: 20160928, end: 20161001
  6. VANCOMYCINE SANDOZ [Suspect]
     Active Substance: VANCOMYCIN
     Indication: HYPERTHERMIA
     Dosage: 1 DF, SINGLE INTAKE
     Route: 042
     Dates: start: 20160928, end: 20160930
  7. METRONIDAZOLE BRAUN [Suspect]
     Active Substance: METRONIDAZOLE
     Indication: PRODUCT USED FOR UNKNOWN INDICATION
     Dosage: 1 DF, 3 TIMES A DAY
     Route: 042
     Dates: start: 20160928, end: 20161001
  8. ZYLORIC [Suspect]
     Active Substance: ALLOPURINOL
     Dosage: UNK
  9. FUROSEMIDE. [Concomitant]
     Active Substance: FUROSEMIDE
     Indication: PRODUCT USED FOR UNKNOWN INDICATION
     Dosage: 40 MG, ONCE A DAY
     Route: 048
  10. LEVOTHYROX [Concomitant]
     Active Substance: LEVOTHYROXINE
     Indication: PRODUCT USED FOR UNKNOWN INDICATION
     Dosage: 1 DF, DAILY
     Route: 048
  11. COLCHICINE. [Suspect]
     Active Substance: COLCHICINE
     Indication: PRODUCT USED FOR UNKNOWN INDICATION
     Dosage: 1 MG, ONCE A DAY
     Route: 048
     Dates: start: 201605, end: 20160927
  12. IPRATROPIUM ARROW NEBULISER SOLUTION 0.5/2MG/ML [Suspect]
     Active Substance: IPRATROPIUM
     Indication: PRODUCT USED FOR UNKNOWN INDICATION
     Dosage: 1 DF, 3 TIMES A DAY
     Route: 055
     Dates: start: 20160928, end: 20161001
  13. APIXABAN [Concomitant]
     Active Substance: APIXABAN
     Indication: PRODUCT USED FOR UNKNOWN INDICATION
     Dosage: 2.5 MG, TWO TIMES A DAY
     Route: 048
     Dates: end: 20161008
  14. INEXIUM                            /01479302/ [Suspect]
     Active Substance: ESOMEPRAZOLE MAGNESIUM
     Indication: GASTROOESOPHAGEAL REFLUX DISEASE
     Dosage: 20 MG, ONCE A DAY
     Route: 048
     Dates: start: 20160927, end: 20161005
  15. PARACETAMOL [Suspect]
     Active Substance: ACETAMINOPHEN
     Indication: HYPERTHERMIA
     Dosage: 500 MG, TWO TIMES A DAY
     Route: 048
     Dates: start: 20160927, end: 20160930

REACTIONS (1)
  - Drug reaction with eosinophilia and systemic symptoms [Recovered/Resolved]

NARRATIVE: CASE EVENT DATE: 20160930
